FAERS Safety Report 10704220 (Version 1)
Quarter: 2014Q4

REPORT INFORMATION
  Report Type: Report from Study
  Country: US (occurrence: None)
  Receive Date: 20141224
  Receipt Date: 20141224
  Transmission Date: 20150529
  Serious: No
  Sender: FDA-Public Use
  Company Number: CABO-14004943

PATIENT
  Age: 65 Year
  Sex: Male

DRUGS (9)
  1. OMEPRAZOLE (OMEPRAZOLE) [Concomitant]
     Active Substance: OMEPRAZOLE
  2. VIAGRA [Concomitant]
     Active Substance: SILDENAFIL CITRATE
  3. COMETRIQ [Suspect]
     Active Substance: CABOZANTINIB S-MALATE
     Indication: THYROID CANCER
     Route: 048
     Dates: start: 20141101
  4. SYNTHROID [Concomitant]
     Active Substance: LEVOTHYROXINE SODIUM
  5. SIMVASTATIN (SIMVASTATIN) [Concomitant]
     Active Substance: SIMVASTATIN
  6. NAPROXEN (NAPROXEN) [Concomitant]
     Active Substance: NAPROXEN
  7. METOPROLOL (METOPROLOL) [Concomitant]
     Active Substance: METOPROLOL
  8. ASPIRIN (ACETYLSALICYLIC ACID) [Concomitant]
     Active Substance: ASPIRIN
  9. HYDROCODONE (HYDROCODONE) [Concomitant]
     Active Substance: HYDROCODONE

REACTIONS (7)
  - Gingival pain [None]
  - Somnolence [None]
  - Oral pain [None]
  - Dysgeusia [None]
  - Arthralgia [None]
  - Groin pain [None]
  - Pain [None]
